FAERS Safety Report 4696809-X (Version None)
Quarter: 2005Q2

REPORT INFORMATION
  Report Type: 
  Country: None (occurrence: None)
  Receive Date: 20050620
  Receipt Date: 20050214
  Transmission Date: 20051028
  Serious: Yes (Life-Threatening)
  Sender: FDA-Public Use
  Company Number: 10312

PATIENT
  Age: 63 Year
  Sex: Male

DRUGS (4)
  1. LEUCOVORIN CALCIUM [Suspect]
     Indication: RECTAL CANCER METASTATIC
     Dosage: 75 MG QD PO
     Route: 048
     Dates: start: 20041116, end: 20041213
  2. LEUCOVORIN CALCIUM [Suspect]
     Indication: RECTAL CANCER METASTATIC
     Dosage: 75 MG QD PO
     Route: 048
     Dates: start: 20041221, end: 20050110
  3. TEGAFUR URACIL [Suspect]
     Dosage: 500 MG QD PO
     Route: 048
     Dates: start: 20041116, end: 20041213
  4. TEGAFUR URACIL [Suspect]
     Dosage: 500 MG QD PO
     Route: 048
     Dates: start: 20041221, end: 20050110

REACTIONS (8)
  - ACUTE MYOCARDIAL INFARCTION [None]
  - ANAEMIA [None]
  - DEHYDRATION [None]
  - DIARRHOEA [None]
  - LYMPHOCYTE COUNT DECREASED [None]
  - RECTAL CANCER RECURRENT [None]
  - SILENT MYOCARDIAL INFARCTION [None]
  - THERAPY NON-RESPONDER [None]
